FAERS Safety Report 6437837-3 (Version None)
Quarter: 2009Q4

REPORT INFORMATION
  Report Type: 
  Country: None (occurrence: None)
  Receive Date: 20091112
  Receipt Date: 20091106
  Transmission Date: 20100525
  Serious: Yes (Other)
  Sender: FDA-Public Use
  Company Number: FR-PFIZER INC-2009236022

PATIENT
  Age: 74 Year
  Sex: Male

DRUGS (1)
  1. TAHOR [Suspect]
     Indication: HYPERLIPIDAEMIA
     Dosage: UNK
     Route: 048
     Dates: start: 20070101

REACTIONS (3)
  - OPTIC NEURITIS [None]
  - OPTIC NEUROPATHY [None]
  - VISUAL ACUITY REDUCED [None]
